FAERS Safety Report 11964888 (Version 1)
Quarter: 2016Q1

REPORT INFORMATION
  Report Type: Spontaneous
  Country: IN (occurrence: IN)
  Receive Date: 20160127
  Receipt Date: 20160127
  Transmission Date: 20160526
  Serious: Yes (Other)
  Sender: FDA-Public Use
  Company Number: IN-ACCORD-037189

PATIENT
  Age: 46 Year
  Sex: Male

DRUGS (2)
  1. ETOPOSIDE. [Suspect]
     Active Substance: ETOPOSIDE
     Indication: GERM CELL CANCER
     Dosage: FOUR CYCLES OF ETOPOSIDE (100 MG/M2)
  2. CISPLATIN. [Concomitant]
     Active Substance: CISPLATIN
     Indication: GERM CELL CANCER
     Dosage: FOUR CYCLES OF CISPLATIN (20 MG/M2)

REACTIONS (1)
  - Acute promyelocytic leukaemia [Unknown]
